FAERS Safety Report 15595606 (Version 1)
Quarter: 2018Q4

REPORT INFORMATION
  Report Type: Spontaneous
  Country: US (occurrence: US)
  Receive Date: 20181107
  Receipt Date: 20181107
  Transmission Date: 20190205
  Serious: Yes (Other)
  Sender: FDA-Public Use
  Company Number: US-AMGEN-USASP2018156615

PATIENT
  Sex: Male

DRUGS (1)
  1. NEUPOGEN [Suspect]
     Active Substance: FILGRASTIM
     Indication: HAEMATOPOIETIC STEM CELL MOBILISATION
     Dosage: UNK
     Route: 065
     Dates: start: 2017

REACTIONS (13)
  - Spinal pain [Unknown]
  - Weight increased [Unknown]
  - Contusion [Unknown]
  - Renal impairment [Unknown]
  - Fatigue [Unknown]
  - Musculoskeletal pain [Unknown]
  - Alopecia [Unknown]
  - Back pain [Unknown]
  - Toxic shock syndrome [Unknown]
  - Increased tendency to bruise [Unknown]
  - Joint injury [Unknown]
  - Neck pain [Unknown]
  - Constipation [Unknown]
